FAERS Safety Report 9630012 (Version 1)
Quarter: 2013Q4

REPORT INFORMATION
  Report Type: Spontaneous
  Country: JP (occurrence: JP)
  Receive Date: 20131017
  Receipt Date: 20131017
  Transmission Date: 20140711
  Serious: Yes (Death)
  Sender: FDA-Public Use
  Company Number: JP-PURDUE-GBR-2013-0016035

PATIENT
  Sex: 0

DRUGS (1)
  1. OXYCODONE HYDROCHLORIDE [Suspect]
     Indication: CANCER PAIN
     Dosage: 200 MG, DAILY
     Route: 042
     Dates: end: 20130830

REACTIONS (1)
  - Lung neoplasm malignant [Fatal]
